FAERS Safety Report 20070269 (Version 2)
Quarter: 2021Q4

REPORT INFORMATION
  Report Type: Report from Study
  Country: IT (occurrence: IT)
  Receive Date: 20211115
  Receipt Date: 20211124
  Transmission Date: 20220304
  Serious: Yes (Hospitalization, Other)
  Sender: FDA-Public Use
  Company Number: None

PATIENT
  Age: 39 Year
  Sex: Male

DRUGS (2)
  1. TAVOR (LORAZEPAM) [Suspect]
     Active Substance: LORAZEPAM
     Indication: Insomnia
     Dosage: 20 DF, TOTAL
     Route: 048
     Dates: start: 20211002, end: 20211002
  2. OMEPRAZOLE [Concomitant]
     Active Substance: OMEPRAZOLE
     Dosage: UNK

REACTIONS (4)
  - Overdose [Unknown]
  - Drug abuse [Recovering/Resolving]
  - Sopor [Recovering/Resolving]
  - Hepatitis alcoholic [Unknown]

NARRATIVE: CASE EVENT DATE: 20211002
